FAERS Safety Report 13624624 (Version 5)
Quarter: 2017Q3

REPORT INFORMATION
  Report Type: Spontaneous
  Country: US (occurrence: US)
  Receive Date: 20170608
  Receipt Date: 20170731
  Transmission Date: 20171127
  Serious: No
  Sender: FDA-Public Use
  Company Number: US-PFIZER INC-2017247774

PATIENT
  Age: 74 Year
  Sex: Female
  Weight: 63.5 kg

DRUGS (1)
  1. FLECTOR [Suspect]
     Active Substance: DICLOFENAC EPOLAMINE
     Indication: ARTHRITIS
     Dosage: 1 DF, 2X/DAY (1.3 % PATCH CHANGE EVERY 12 HOURS)
     Route: 062

REACTIONS (2)
  - Drug ineffective for unapproved indication [Unknown]
  - Product adhesion issue [Unknown]
